FAERS Safety Report 4714094-7 (Version None)
Quarter: 2005Q3

REPORT INFORMATION
  Report Type: 
  Country: None (occurrence: None)
  Receive Date: 20050712
  Receipt Date: 20050629
  Transmission Date: 20060218
  Serious: Yes (Other)
  Sender: FDA-Public Use
  Company Number: EWC050644578

PATIENT
  Age: 24 Year
  Sex: Male

DRUGS (9)
  1. ZYPREXA [Suspect]
     Indication: PSYCHOTIC DISORDER
     Dosage: 15 MG/2 DAY
     Dates: start: 20050402, end: 20050614
  2. DOMINAL (PROTHIPENDYL HYDROCHLORIDE) [Concomitant]
  3. SUBUTEX [Concomitant]
  4. MILTAUN (MEPROBAMATE) [Concomitant]
  5. TRAZODONE HCL [Concomitant]
  6. TRUXAL (CHLORPROTHIXENE HYDROCHLORIDE) [Concomitant]
  7. ZOLDEM (ZOLPIDEM TARTRATE) [Concomitant]
  8. NOZINAN (LEVOMEPROMAZINE HYDROCHLORIDE) [Concomitant]
  9. GLADEM (SERTRALINE HYDROCHLORIDE) [Concomitant]

REACTIONS (4)
  - BLOOD PROLACTIN INCREASED [None]
  - BREAST MASS [None]
  - FIBROCYSTIC BREAST DISEASE [None]
  - PAIN [None]
